FAERS Safety Report 5931888-0 (Version None)
Quarter: 2008Q4

REPORT INFORMATION
  Report Type: 
  Country: None (occurrence: None)
  Receive Date: 20081027
  Receipt Date: 20081015
  Transmission Date: 20090506
  Serious: Yes (Death, Life-Threatening, Hospitalization, Other)
  Sender: FDA-Public Use
  Company Number: JP-PFIZER INC-2008087021

PATIENT
  Sex: Male

DRUGS (7)
  1. IRINOTECAN HCL [Suspect]
     Indication: RECTAL CANCER
     Route: 042
     Dates: start: 20080821, end: 20081002
  2. IRINOTECAN HCL [Suspect]
     Indication: COLON CANCER
  3. CALCIUM FOLINATE [Concomitant]
     Route: 042
     Dates: start: 20070830, end: 20081002
  4. FLUOROURACIL [Concomitant]
     Route: 042
     Dates: start: 20070830, end: 20081002
  5. WASSER V GRAN. [Concomitant]
     Route: 048
     Dates: start: 20080228, end: 20080313
  6. DECADRON [Concomitant]
     Route: 048
     Dates: start: 20080821, end: 20080825
  7. ASPIRIN [Concomitant]
     Indication: MYOCARDIAL INFARCTION

REACTIONS (7)
  - CHOLINERGIC SYNDROME [None]
  - DEHYDRATION [None]
  - DIARRHOEA [None]
  - DISSEMINATED INTRAVASCULAR COAGULATION [None]
  - FEBRILE NEUTROPENIA [None]
  - RENAL FAILURE ACUTE [None]
  - THROMBOCYTOPENIA [None]
